FAERS Safety Report 8817024 (Version 1)
Quarter: 2012Q4

REPORT INFORMATION
  Report Type: Spontaneous
  Country: JP (occurrence: None)
  Receive Date: 20121002
  Receipt Date: 20121002
  Transmission Date: 20130627
  Serious: Yes (Other)
  Sender: FDA-Public Use
  Company Number: 2010JP007176

PATIENT
  Age: 83 Year
  Sex: Female

DRUGS (9)
  1. VESICARE [Suspect]
     Indication: OVERACTIVE BLADDER
     Route: 048
  2. DIART [Concomitant]
  3. BAYASPIRIN (ACETYLSALICYLIC ACID) [Concomitant]
  4. PARIET (RABEPRAZOLE SODIUM) FORMULATION UNKNOWN [Concomitant]
  5. NITRODERM (GLYCERYL TRINITRATE) FORMULATION UNKNOWN [Concomitant]
  6. BONALON (ALENDRONATE SODIUM) FORMULATION UNKNOWN [Concomitant]
  7. LIPIDIL (FENOFIBRATE) FORMULATION UNKNOWN [Concomitant]
  8. ISONITOLL (ISOSORBIDE MONONITRATE) FORMULATION UNKNOWN [Concomitant]
  9. INTENACIN (INDOMETACIN) TAPE [Concomitant]

REACTIONS (4)
  - Pain in extremity [None]
  - Oedema peripheral [None]
  - General physical condition abnormal [None]
  - Wheelchair user [None]
